FAERS Safety Report 18518372 (Version 3)
Quarter: 2022Q1

REPORT INFORMATION
  Report Type: Spontaneous
  Country: US (occurrence: US)
  Receive Date: 20201118
  Receipt Date: 20220119
  Transmission Date: 20220423
  Serious: No
  Sender: FDA-Public Use
  Company Number: US-PFIZER INC-2020453501

PATIENT
  Age: 55 Year
  Sex: Female

DRUGS (3)
  1. IBRANCE [Suspect]
     Active Substance: PALBOCICLIB
     Indication: Breast cancer female
     Dosage: 75 MG, CYCLIC (75 MG ONCE A DAY) X 21 DAYS)
     Dates: start: 20170726
  2. IBRANCE [Suspect]
     Active Substance: PALBOCICLIB
     Dosage: 125 MG, CYCLIC (QD 21DAYS, THEN 7 DAYS OFF)
     Dates: start: 20170726, end: 202012
  3. IBRANCE [Suspect]
     Active Substance: PALBOCICLIB
     Dosage: 75 MG
     Dates: start: 20200616

REACTIONS (3)
  - SARS-CoV-2 test positive [Unknown]
  - Arthropod sting [Unknown]
  - Skin infection [Unknown]
